FAERS Safety Report 12223550 (Version 1)
Quarter: 2016Q1

REPORT INFORMATION
  Report Type: Spontaneous
  Country: IT (occurrence: IT)
  Receive Date: 20160330
  Receipt Date: 20160330
  Transmission Date: 20160526
  Serious: Yes (Hospitalization)
  Sender: FDA-Public Use
  Company Number: IT-SA-2016SA061027

PATIENT
  Age: 62 Year
  Sex: Male

DRUGS (10)
  1. JANUMET [Suspect]
     Active Substance: METFORMIN HYDROCHLORIDE\SITAGLIPTIN PHOSPHATE
     Indication: DIABETES MELLITUS
     Dosage: DOSE:2 UNIT(S)
     Route: 048
     Dates: start: 20150101, end: 20150205
  2. CARDICOR [Concomitant]
     Active Substance: BISOPROLOL
     Dosage: 1 UNIT DOSE
     Route: 048
  3. LANTUS [Suspect]
     Active Substance: INSULIN GLARGINE
     Indication: DIABETES MELLITUS
     Dosage: DOSE:45 UNIT(S)
     Route: 058
     Dates: start: 20150101, end: 20150205
  4. LANSOPRAZOLE. [Concomitant]
     Active Substance: LANSOPRAZOLE
     Route: 048
  5. TRAVATAN [Concomitant]
     Active Substance: TRAVOPROST
     Route: 047
  6. APROVEL [Concomitant]
     Active Substance: IRBESARTAN
     Dosage: 1 UNIT DOSE
     Route: 048
  7. SERETIDE [Concomitant]
     Active Substance: FLUTICASONE FUROATE\SALMETEROL XINAFOATE
  8. VYTORIN [Concomitant]
     Active Substance: EZETIMIBE\SIMVASTATIN
     Dosage: 1 UNIT DOSE (10 MG)
     Route: 048
  9. METFORMIN [Suspect]
     Active Substance: METFORMIN HYDROCHLORIDE
     Indication: DIABETES MELLITUS
     Route: 048
     Dates: start: 20150101, end: 20150205
  10. ACETYLSALICYLIC ACID [Concomitant]
     Active Substance: ASPIRIN
     Route: 048

REACTIONS (4)
  - Loss of consciousness [Unknown]
  - Subarachnoid haemorrhage [Unknown]
  - Hypoglycaemia [Unknown]
  - Head injury [Unknown]

NARRATIVE: CASE EVENT DATE: 20160205
